FAERS Safety Report 5942673-8 (Version None)
Quarter: 2008Q4

REPORT INFORMATION
  Report Type: 
  Country: None (occurrence: None)
  Receive Date: 20081106
  Receipt Date: 20081029
  Transmission Date: 20090506
  Serious: Yes (Other)
  Sender: FDA-Public Use
  Company Number: IT-RANBAXY-2008RR-18830

PATIENT
  Age: 47 Year
  Sex: Male

DRUGS (15)
  1. STAVUDINE [Suspect]
     Indication: HIV INFECTION
     Dosage: 40 MG, BID
     Dates: start: 19980101, end: 20050501
  2. STAVUDINE [Suspect]
     Dosage: 40 MG, BID
     Dates: start: 20030701
  3. LAMIVUDINE [Suspect]
     Indication: HIV INFECTION
     Dosage: 150 MG, BID
     Dates: start: 19980101, end: 20050501
  4. LAMIVUDINE [Suspect]
     Dosage: UNK
     Dates: start: 20030701
  5. INDINIVIR SULFATE [Suspect]
     Indication: HIV INFECTION
     Dosage: 400 MG, TID
     Dates: end: 20050501
  6. ZIDOVUDINE [Suspect]
     Indication: HIV INFECTION
     Dosage: 300 MG, QD
     Dates: end: 20050501
  7. NEVIRAPINE [Suspect]
     Indication: HIV INFECTION
     Dosage: 200 MG, BID
     Dates: start: 20030701, end: 20050501
  8. PEGINTERFERON-A-2A [Suspect]
     Indication: HEPATITIS C
     Dosage: 180 UG, 1/WEEK
     Dates: start: 20040301, end: 20040801
  9. RIBAVIRIN [Suspect]
     Indication: HEPATITIS C
     Dosage: 200 MG, UNK
     Dates: start: 20040301, end: 20040801
  10. DELTACORTENE [Concomitant]
     Dosage: 40 MG, UNK
     Dates: start: 20050501
  11. DELTACORTENE [Concomitant]
     Dosage: 30 MG, UNK
     Dates: start: 20050501
  12. DELTACORTENE [Concomitant]
     Dosage: 20 MG, UNK
     Dates: start: 20050501
  13. DELTACORTENE [Concomitant]
     Dosage: 10 MG, UNK
     Dates: start: 20050501
  14. DELTACORTENE [Concomitant]
     Dosage: 5 MG, UNK
     Dates: start: 20050501
  15. DELTACORTENE [Concomitant]
     Dosage: 2 MG, UNK
     Dates: start: 20050501

REACTIONS (1)
  - ORAL LICHEN PLANUS [None]
